FAERS Safety Report 25435939 (Version 1)
Quarter: 2025Q2

REPORT INFORMATION
  Report Type: Spontaneous
  Country: MA (occurrence: MA)
  Receive Date: 20250613
  Receipt Date: 20250613
  Transmission Date: 20250717
  Serious: Yes (Other)
  Sender: ASTELLAS
  Company Number: MA-ASTELLAS-2025-AER-030614

PATIENT
  Age: 50 Year
  Sex: Female

DRUGS (1)
  1. ERLOTINIB [Suspect]
     Active Substance: ERLOTINIB
     Indication: Non-small cell lung cancer
     Route: 065

REACTIONS (4)
  - Growth of eyelashes [Unknown]
  - Blepharitis [Unknown]
  - Ocular discomfort [Unknown]
  - Visual impairment [Unknown]
